FAERS Safety Report 10093089 (Version 1)
Quarter: 2014Q2

REPORT INFORMATION
  Report Type: Spontaneous
  Country: US (occurrence: US)
  Receive Date: 20140421
  Receipt Date: 20140421
  Transmission Date: 20141212
  Serious: No
  Sender: FDA-Public Use
  Company Number: US-SANOFI-AVENTIS-2013SA092995

PATIENT
  Age: 51 Year
  Sex: Female

DRUGS (2)
  1. ALLEGRA [Suspect]
     Indication: MULTIPLE ALLERGIES
     Dosage: TAKEN FROM: YEARS?30 MG DOSE AND THEN REPEAT 3-4 TIMES A DAY IF SHE NEEDED ADDITIONAL 30 MG DOSES
     Route: 048
  2. CLARITIN [Concomitant]

REACTIONS (2)
  - Dry mouth [Not Recovered/Not Resolved]
  - Inappropriate schedule of drug administration [Unknown]
